FAERS Safety Report 5846753-7 (Version None)
Quarter: 2008Q3

REPORT INFORMATION
  Report Type: 
  Country: None (occurrence: None)
  Receive Date: 20080815
  Receipt Date: 20080807
  Transmission Date: 20090109
  Serious: Yes (Hospitalization)
  Sender: FDA-Public Use
  Company Number: US-AVENTIS-200817510GDDC

PATIENT
  Age: 78 Year
  Sex: Female
  Weight: 85 kg

DRUGS (11)
  1. METRONIDAZOLE HCL [Suspect]
     Indication: UPPER RESPIRATORY TRACT INFECTION
  2. LEVOFLOXACIN [Suspect]
     Indication: UPPER RESPIRATORY TRACT INFECTION
  3. WARFARIN SODIUM [Suspect]
     Indication: CEREBROVASCULAR ACCIDENT
  4. WARFARIN SODIUM [Suspect]
  5. LEVOTHYROXINE SODIUM [Concomitant]
  6. CITALOPRAM HYDROBROMIDE [Concomitant]
  7. METOPROLOL [Concomitant]
  8. CLONIDINE [Concomitant]
     Route: 061
  9. TEGASEROD [Concomitant]
  10. POTASSIUM CHLORIDE [Concomitant]
     Dosage: DOSE: UNK
  11. MONTELUKAST SODIUM [Concomitant]

REACTIONS (5)
  - DRUG INTERACTION [None]
  - EPISTAXIS [None]
  - FACIAL BONES FRACTURE [None]
  - HAEMORRHAGE INTRACRANIAL [None]
  - INTERNATIONAL NORMALISED RATIO INCREASED [None]
